FAERS Safety Report 25771411 (Version 2)
Quarter: 2025Q3

REPORT INFORMATION
  Report Type: Spontaneous
  Country: GB (occurrence: GB)
  Receive Date: 20250908
  Receipt Date: 20250911
  Transmission Date: 20251020
  Serious: Yes (Disabling, Other)
  Sender: ORGANON
  Company Number: None

PATIENT
  Sex: Female
  Weight: 70 kg

DRUGS (5)
  1. MONTELUKAST SODIUM [Suspect]
     Active Substance: MONTELUKAST SODIUM
     Indication: Asthma
     Dosage: 10MG PER DAY (TAKING FOR OVER 20 YEARS DAILY)
     Dates: end: 20250815
  2. PULMICORT TURBUHALER [Concomitant]
     Active Substance: BUDESONIDE
     Indication: Asthma
     Dates: start: 2025
  3. UTROGESTAN [Concomitant]
     Active Substance: PROGESTERONE
     Indication: Hormone replacement therapy
     Dosage: 100MG X1 PER DAY
  4. ESTRADIOL [Concomitant]
     Active Substance: ESTRADIOL
     Indication: Hormone replacement therapy
     Dosage: 750 MCG (3 TIMES PER WEEK)
  5. ESTRADERM [Concomitant]
     Active Substance: ESTRADIOL
     Indication: Hormone replacement therapy
     Dosage: 50 PATCHES (2 TIMES PER WEEK)

REACTIONS (1)
  - Drug withdrawal headache [Recovered/Resolved]

NARRATIVE: CASE EVENT DATE: 20250815
